FAERS Safety Report 22989739 (Version 5)
Quarter: 2024Q2

REPORT INFORMATION
  Report Type: Report from Study
  Country: US (occurrence: US)
  Receive Date: 20230927
  Receipt Date: 20240509
  Transmission Date: 20240716
  Serious: No
  Sender: FDA-Public Use
  Company Number: US-SAGE-2023SAGE000090

PATIENT
  Age: 7 Year
  Sex: Female
  Weight: 30.839 kg

DRUGS (6)
  1. ZULRESSO [Suspect]
     Active Substance: BREXANOLONE
     Indication: Epilepsy
     Dosage: UNK
     Route: 042
     Dates: start: 20230901
  2. ZULRESSO [Suspect]
     Active Substance: BREXANOLONE
     Dosage: 300 MCG/KG/HR (DOSE AT THE TIME OF EEG SUPRESSION)
     Route: 042
  3. ZULRESSO [Suspect]
     Active Substance: BREXANOLONE
     Dosage: UNK, BAG 7 EXCEEDED 12 HOURS HANG TIME BY APPROXIMATELY 3.5 HOURS
     Route: 042
     Dates: start: 20230904
  4. ZULRESSO [Suspect]
     Active Substance: BREXANOLONE
     Dosage: UNK, BAG 8
     Route: 042
     Dates: start: 20230905
  5. ZULRESSO [Suspect]
     Active Substance: BREXANOLONE
     Dosage: UNK
     Route: 042
     Dates: end: 20230906
  6. GANAXOLONE [Suspect]
     Active Substance: GANAXOLONE
     Indication: Status epilepticus
     Dosage: UNK
     Route: 065
     Dates: start: 20230912

REACTIONS (4)
  - Electroencephalogram abnormal [Unknown]
  - Drug monitoring procedure incorrectly performed [Unknown]
  - Off label use [Unknown]
  - Off label use [Unknown]

NARRATIVE: CASE EVENT DATE: 20230901
